FAERS Safety Report 4282407-9 (Version None)
Quarter: 2004Q1

REPORT INFORMATION
  Report Type: 
  Country: None (occurrence: None)
  Receive Date: 20040116
  Receipt Date: 20030418
  Transmission Date: 20041129
  Serious: No
  Sender: FDA-Public Use
  Company Number: 03P-163-0217135-00

PATIENT
  Age: 23 Year
  Sex: Female

DRUGS (1)
  1. MERIDIA [Suspect]
     Indication: WEIGHT DECREASED
     Dosage: 10 MG, 1 IN 1 D, ORAL
     Route: 048

REACTIONS (1)
  - CHOLECYSTITIS [None]
